FAERS Safety Report 8634701 (Version 2)
Quarter: 2013Q2

REPORT INFORMATION
  Report Type: Spontaneous
  Country: BR (occurrence: BR)
  Receive Date: 20120626
  Receipt Date: 20130408
  Transmission Date: 20140414
  Serious: Yes (Other)
  Sender: FDA-Public Use
  Company Number: PHHY2012BR054367

PATIENT
  Sex: Male
  Weight: 94 kg

DRUGS (4)
  1. DIOVAN [Suspect]
     Indication: BLOOD PRESSURE ABNORMAL
     Dosage: 160 MG, DAILY
     Route: 048
  2. DIOVAN [Suspect]
     Dosage: 320 MG, DAILY
     Route: 048
  3. VYTORIN [Concomitant]
     Indication: BLOOD CHOLESTEROL ABNORMAL
     Dosage: 1 DF(10/20MG), DAILY
     Route: 048
  4. VYTORIN [Concomitant]
     Indication: BLOOD TRIGLYCERIDES ABNORMAL

REACTIONS (1)
  - Hiatus hernia [Recovered/Resolved]
